FAERS Safety Report 13360483 (Version 1)
Quarter: 2017Q1

REPORT INFORMATION
  Report Type: Report from Study
  Country: US (occurrence: US)
  Receive Date: 20170322
  Receipt Date: 20170322
  Transmission Date: 20170429
  Serious: Yes (Hospitalization, Other)
  Sender: FDA-Public Use
  Company Number: US-GILEAD-2017-0254719

PATIENT
  Age: 87 Year
  Sex: Female

DRUGS (1)
  1. AMBRISENTAN [Suspect]
     Active Substance: AMBRISENTAN
     Indication: PRODUCT USED FOR UNKNOWN INDICATION
     Dosage: 10 MG, QD
     Route: 065

REACTIONS (5)
  - Dyspnoea exertional [Not Recovered/Not Resolved]
  - Cerebrovascular accident [Unknown]
  - Dyspnoea at rest [Not Recovered/Not Resolved]
  - Condition aggravated [Not Recovered/Not Resolved]
  - Memory impairment [Not Recovered/Not Resolved]
